FAERS Safety Report 8825955 (Version 1)
Quarter: 2012Q4

REPORT INFORMATION
  Report Type: 
  Country: NL (occurrence: NL)
  Receive Date: 20121005
  Receipt Date: 20121005
  Transmission Date: 20130627
  Serious: Yes (Hospitalization)
  Sender: FDA-Public Use
  Company Number: NL-ABBOTT-12P-114-0936050-00

PATIENT
  Age: 21 Year
  Weight: 60 kg

DRUGS (2)
  1. HUMIRA [Suspect]
     Indication: CROHN^S DISEASE
     Route: 058
     Dates: start: 20111120, end: 20120110
  2. LANVIS [Concomitant]
     Indication: CROHN^S DISEASE
     Route: 048
     Dates: start: 20110220, end: 201207

REACTIONS (8)
  - Subcorneal pustular dermatosis [Unknown]
  - Folliculitis [Unknown]
  - Pustular psoriasis [Recovered/Resolved]
  - Rash [Recovered/Resolved]
  - Pruritus [Recovered/Resolved]
  - Acne [Recovered/Resolved]
  - Acute generalised exanthematous pustulosis [Unknown]
  - Pseudomonas infection [Unknown]
